FAERS Safety Report 8869911 (Version 1)
Quarter: 2012Q4

REPORT INFORMATION
  Report Type: Report from Study
  Country: US (occurrence: US)
  Receive Date: 20121028
  Receipt Date: 20121028
  Transmission Date: 20130627
  Serious: Yes (Other)
  Sender: FDA-Public Use
  Company Number: US-US-EMD SERONO, INC.-7169411

PATIENT
  Sex: Female

DRUGS (1)
  1. REBIF [Suspect]
     Indication: MULTIPLE SCLEROSIS
     Route: 058
     Dates: start: 20040914

REACTIONS (7)
  - Loss of consciousness [Unknown]
  - Dizziness [Unknown]
  - Fall [Unknown]
  - Abdominal pain upper [Unknown]
  - Paraesthesia [Unknown]
  - Visual impairment [Unknown]
  - Headache [Unknown]
